FAERS Safety Report 7321922-8 (Version None)
Quarter: 2011Q1

REPORT INFORMATION
  Report Type: 
  Country: None (occurrence: None)
  Receive Date: 20110228
  Receipt Date: 20110224
  Transmission Date: 20110831
  Serious: Yes (Death)
  Sender: FDA-Public Use
  Company Number: NL-ROCHE-762177

PATIENT
  Sex: Male

DRUGS (1)
  1. MIRCERA [Suspect]
     Dosage: DOSE: 100 UG/0.3 ML
     Route: 058
     Dates: start: 20101004, end: 20101228

REACTIONS (1)
  - DEATH [None]
